FAERS Safety Report 24391352 (Version 3)
Quarter: 2025Q2

REPORT INFORMATION
  Report Type: Spontaneous
  Country: SE (occurrence: SE)
  Receive Date: 20241003
  Receipt Date: 20250624
  Transmission Date: 20250717
  Serious: Yes (Hospitalization, Other)
  Sender: MYLAN
  Company Number: None

PATIENT
  Age: 50 Year
  Sex: Female

DRUGS (36)
  1. VENLAFAXINE [Suspect]
     Active Substance: VENLAFAXINE HYDROCHLORIDE
     Indication: Product used for unknown indication
     Dates: start: 20240913, end: 20240913
  2. VENLAFAXINE [Suspect]
     Active Substance: VENLAFAXINE HYDROCHLORIDE
     Route: 065
     Dates: start: 20240913, end: 20240913
  3. VENLAFAXINE [Suspect]
     Active Substance: VENLAFAXINE HYDROCHLORIDE
     Route: 065
     Dates: start: 20240913, end: 20240913
  4. VENLAFAXINE [Suspect]
     Active Substance: VENLAFAXINE HYDROCHLORIDE
     Dates: start: 20240913, end: 20240913
  5. ZOLPIDEM [Suspect]
     Active Substance: ZOLPIDEM TARTRATE
     Indication: Product used for unknown indication
  6. ZOLPIDEM [Suspect]
     Active Substance: ZOLPIDEM TARTRATE
     Route: 065
  7. ZOLPIDEM [Suspect]
     Active Substance: ZOLPIDEM TARTRATE
     Route: 065
  8. ZOLPIDEM [Suspect]
     Active Substance: ZOLPIDEM TARTRATE
  9. TRAMADOL [Suspect]
     Active Substance: TRAMADOL
     Indication: Product used for unknown indication
  10. TRAMADOL [Suspect]
     Active Substance: TRAMADOL
     Route: 065
  11. TRAMADOL [Suspect]
     Active Substance: TRAMADOL
     Route: 065
  12. TRAMADOL [Suspect]
     Active Substance: TRAMADOL
  13. ZOPICLONE [Suspect]
     Active Substance: ZOPICLONE
     Indication: Product used for unknown indication
  14. ZOPICLONE [Suspect]
     Active Substance: ZOPICLONE
     Route: 065
  15. ZOPICLONE [Suspect]
     Active Substance: ZOPICLONE
     Route: 065
  16. ZOPICLONE [Suspect]
     Active Substance: ZOPICLONE
  17. QUETIAPINE [Suspect]
     Active Substance: QUETIAPINE
     Indication: Product used for unknown indication
     Dates: start: 20240913, end: 20240913
  18. QUETIAPINE [Suspect]
     Active Substance: QUETIAPINE
     Route: 065
     Dates: start: 20240913, end: 20240913
  19. QUETIAPINE [Suspect]
     Active Substance: QUETIAPINE
     Route: 065
     Dates: start: 20240913, end: 20240913
  20. QUETIAPINE [Suspect]
     Active Substance: QUETIAPINE
     Dates: start: 20240913, end: 20240913
  21. DIAZEPAM [Suspect]
     Active Substance: DIAZEPAM
     Indication: Product used for unknown indication
     Dates: start: 20240913, end: 20240913
  22. DIAZEPAM [Suspect]
     Active Substance: DIAZEPAM
     Route: 065
     Dates: start: 20240913, end: 20240913
  23. DIAZEPAM [Suspect]
     Active Substance: DIAZEPAM
     Route: 065
     Dates: start: 20240913, end: 20240913
  24. DIAZEPAM [Suspect]
     Active Substance: DIAZEPAM
     Dates: start: 20240913, end: 20240913
  25. PROPIOMAZINE [Suspect]
     Active Substance: PROPIOMAZINE
     Indication: Product used for unknown indication
     Dates: start: 20240913, end: 20240913
  26. PROPIOMAZINE [Suspect]
     Active Substance: PROPIOMAZINE
     Route: 065
     Dates: start: 20240913, end: 20240913
  27. PROPIOMAZINE [Suspect]
     Active Substance: PROPIOMAZINE
     Route: 065
     Dates: start: 20240913, end: 20240913
  28. PROPIOMAZINE [Suspect]
     Active Substance: PROPIOMAZINE
     Dates: start: 20240913, end: 20240913
  29. CALCIUM CARBONATE\CHOLECALCIFEROL [Concomitant]
     Active Substance: CALCIUM CARBONATE\CHOLECALCIFEROL
     Dosage: 1 DOSAGE FORM, BID
  30. CALCIUM CARBONATE\CHOLECALCIFEROL [Concomitant]
     Active Substance: CALCIUM CARBONATE\CHOLECALCIFEROL
     Dosage: 1 DOSAGE FORM, BID
     Route: 065
  31. CALCIUM CARBONATE\CHOLECALCIFEROL [Concomitant]
     Active Substance: CALCIUM CARBONATE\CHOLECALCIFEROL
     Dosage: 1 DOSAGE FORM, BID
     Route: 065
  32. CALCIUM CARBONATE\CHOLECALCIFEROL [Concomitant]
     Active Substance: CALCIUM CARBONATE\CHOLECALCIFEROL
     Dosage: 1 DOSAGE FORM, BID
  33. Betolvex [Concomitant]
  34. Betolvex [Concomitant]
     Route: 065
  35. Betolvex [Concomitant]
     Route: 065
  36. Betolvex [Concomitant]

REACTIONS (5)
  - Depressed level of consciousness [Unknown]
  - Suicide attempt [Unknown]
  - Toxicity to various agents [Unknown]
  - Loss of consciousness [Unknown]
  - Intentional overdose [Unknown]

NARRATIVE: CASE EVENT DATE: 20240913
